FAERS Safety Report 4971824-7 (Version None)
Quarter: 2006Q2

REPORT INFORMATION
  Report Type: 
  Country: None (occurrence: None)
  Receive Date: 20060406
  Receipt Date: 20060317
  Transmission Date: 20061013
  Serious: Yes (Hospitalization, Other)
  Sender: FDA-Public Use
  Company Number: FR200601004942

PATIENT
  Age: 70 Year
  Sex: Female

DRUGS (9)
  1. FORTEO [Suspect]
     Indication: OSTEOPOROSIS
     Dosage: 20 UG, DAILY (1/D), SUBCUTANEOUS
     Route: 058
     Dates: start: 20060114
  2. FORTEO [Concomitant]
  3. TRIVASTAL (PIRIBEDIL) [Concomitant]
  4. ACETAMINOPHEN W/ PROPOXYPHENE HCL [Concomitant]
  5. CALCIDOSE (CALCIUM CARBONATE) [Concomitant]
  6. KESTINE (EBASTINE) [Concomitant]
  7. OMEPRAZOLE [Concomitant]
  8. LASIX [Concomitant]
  9. CELLCEPT [Concomitant]

REACTIONS (5)
  - HYPOTENSION [None]
  - LUNG INFECTION [None]
  - MALAISE [None]
  - PHLEBITIS [None]
  - PNEUMONIA [None]
